FAERS Safety Report 11997419 (Version 2)
Quarter: 2016Q1

REPORT INFORMATION
  Report Type: Spontaneous
  Country: BR (occurrence: BR)
  Receive Date: 20160203
  Receipt Date: 20160208
  Transmission Date: 20160526
  Serious: Yes (Hospitalization, Other)
  Sender: FDA-Public Use
  Company Number: BR-ABBVIE-16P-020-1549240-00

PATIENT
  Sex: Female
  Weight: 84 kg

DRUGS (15)
  1. AMITRIPTYLINE [Concomitant]
     Active Substance: AMITRIPTYLINE
     Indication: PRODUCT USED FOR UNKNOWN INDICATION
  2. HYOSCINE [Suspect]
     Active Substance: SCOPOLAMINE
     Indication: PRODUCT USED FOR UNKNOWN INDICATION
     Route: 065
  3. ATENOLOL. [Concomitant]
     Active Substance: ATENOLOL
     Indication: PRODUCT USED FOR UNKNOWN INDICATION
  4. NALDECON (CARBINOXAMINE MALEATE\PHENYLEPHRINE HYDROCHLORIDE\PHENYLPROPANOLAMINE HYDROCHLORIDE\PHENYLTOLOXAMINE CITRATE) [Suspect]
     Active Substance: CARBINOXAMINE MALEATE\PHENYLEPHRINE HYDROCHLORIDE\PHENYLPROPANOLAMINE HYDROCHLORIDE\PHENYLTOLOXAMINE CITRATE
     Indication: PRODUCT USED FOR UNKNOWN INDICATION
     Route: 065
  5. AZATHIOPRINE. [Concomitant]
     Active Substance: AZATHIOPRINE
     Indication: PRODUCT USED FOR UNKNOWN INDICATION
  6. LORAZEPAM. [Concomitant]
     Active Substance: LORAZEPAM
     Indication: PRODUCT USED FOR UNKNOWN INDICATION
  7. ACTEMRA [Suspect]
     Active Substance: TOCILIZUMAB
     Indication: RHEUMATOID ARTHRITIS
     Route: 065
     Dates: start: 2012
  8. ENALAPRIL [Concomitant]
     Active Substance: ENALAPRIL
     Indication: PRODUCT USED FOR UNKNOWN INDICATION
  9. LOSARTAN. [Concomitant]
     Active Substance: LOSARTAN
     Indication: PRODUCT USED FOR UNKNOWN INDICATION
  10. HUMIRA [Suspect]
     Active Substance: ADALIMUMAB
     Indication: RHEUMATOID ARTHRITIS
     Route: 058
  11. PREDNISONE. [Concomitant]
     Active Substance: PREDNISONE
     Indication: PRODUCT USED FOR UNKNOWN INDICATION
  12. FLUOXETINE [Concomitant]
     Active Substance: FLUOXETINE HYDROCHLORIDE
     Indication: PRODUCT USED FOR UNKNOWN INDICATION
  13. PROCTYL [Concomitant]
     Active Substance: DIBUCAINE\POLICRESULEN
     Indication: PRODUCT USED FOR UNKNOWN INDICATION
     Route: 054
  14. MESALAZINE [Concomitant]
     Active Substance: MESALAMINE
     Indication: PRODUCT USED FOR UNKNOWN INDICATION
  15. OMEPRAZOLE. [Concomitant]
     Active Substance: OMEPRAZOLE
     Indication: PRODUCT USED FOR UNKNOWN INDICATION

REACTIONS (13)
  - Immunodeficiency [Unknown]
  - Autoimmune hepatitis [Unknown]
  - Diarrhoea haemorrhagic [Unknown]
  - Intensive care [Unknown]
  - SLE arthritis [Unknown]
  - Diabetes mellitus [Unknown]
  - Gait disturbance [Unknown]
  - Vomiting [Unknown]
  - Nausea [Unknown]
  - Ankylosing spondylitis [Unknown]
  - Colitis ulcerative [Unknown]
  - Hypertension [Unknown]
  - Drug hypersensitivity [Unknown]
